FAERS Safety Report 4656121-1 (Version None)
Quarter: 2005Q2

REPORT INFORMATION
  Report Type: 
  Country: None (occurrence: None)
  Receive Date: 20050509
  Receipt Date: 20050428
  Transmission Date: 20051028
  Serious: Yes (Other)
  Sender: FDA-Public Use
  Company Number: US-JNJFOC-20050407268

PATIENT
  Age: 22 Year
  Sex: Female

DRUGS (1)
  1. LEUSTATIN [Suspect]

REACTIONS (1)
  - OVARIAN FAILURE [None]
